FAERS Safety Report 22258072 (Version 1)
Quarter: 2023Q2

REPORT INFORMATION
  Report Type: Spontaneous
  Country: CN (occurrence: CN)
  Receive Date: 20230427
  Receipt Date: 20230427
  Transmission Date: 20230722
  Serious: Yes (Hospitalization, Other)
  Sender: FDA-Public Use
  Company Number: CN-STRIDES ARCOLAB LIMITED-2023SP006157

PATIENT
  Age: 24 Month
  Sex: Male

DRUGS (12)
  1. PREDNISOLONE [Suspect]
     Active Substance: PREDNISOLONE
     Indication: Langerhans^ cell histiocytosis
     Dosage: 40 MILLIGRAM/SQ. METER; PER DAY; FIRST-LINE INDUCTION THERAPY ; TAPERED IN 2 WEEKS
     Route: 048
  2. PREDNISOLONE [Suspect]
     Active Substance: PREDNISOLONE
     Dosage: UNK; TAPERED IN 2 WEEKS
     Route: 048
  3. PREDNISOLONE [Suspect]
     Active Substance: PREDNISOLONE
     Dosage: UNK; A SECOND LINE TREATMENT
     Route: 065
  4. ETOPOSIDE [Suspect]
     Active Substance: ETOPOSIDE
     Indication: Langerhans^ cell histiocytosis
     Dosage: 60 MILLIGRAM/SQ. METER; PER DAY; FIRST-LINE INDUCTION THERAPY; IV DRIP; ON DAYS 1-5
     Route: 041
  5. ETOPOSIDE [Suspect]
     Active Substance: ETOPOSIDE
     Dosage: 150 MILLIGRAM/SQ. METER; PER DAY; IV DRIP; ON DAYS 18, 25, 32 AND 39
     Route: 041
  6. METHOTREXATE [Suspect]
     Active Substance: METHOTREXATE
     Indication: Langerhans^ cell histiocytosis
     Dosage: UNK; FIRST-LINE INDUCTION THERAPY
     Route: 065
  7. VINDESINE [Suspect]
     Active Substance: VINDESINE
     Indication: Langerhans^ cell histiocytosis
     Dosage: 3 MILLIGRAM/SQ. METER; PER DAY; FIRST-LINE INDUCTION THERAPY; IV DRIP; ON DAY 15, 22, 29 AND 36,
     Route: 041
  8. VINDESINE [Suspect]
     Active Substance: VINDESINE
     Dosage: UNK; SECOND LINE TREATMENT
     Route: 065
  9. MERCAPTOPURINE [Suspect]
     Active Substance: MERCAPTOPURINE
     Indication: Langerhans^ cell histiocytosis
     Dosage: UNK; FIRST-LINE INDUCTION THERAPY
     Route: 065
  10. CLADRIBINE [Suspect]
     Active Substance: CLADRIBINE
     Indication: Langerhans^ cell histiocytosis
     Dosage: 9 MILLIGRAM/SQ. METER; PER DAY; RECEIVED 4 COURSES; IV DRIP; ON DAYS 1-5
     Route: 041
  11. CYTARABINE [Suspect]
     Active Substance: CYTARABINE
     Indication: Langerhans^ cell histiocytosis
     Dosage: UNK; A SECOND LINE TREATMENT
     Route: 065
  12. CYTARABINE [Suspect]
     Active Substance: CYTARABINE
     Dosage: 500 MILLIGRAM/SQ. METER, EVERY 4 WEEKS; RECEIVED 4 COURSES; IV DRIP; ON DAYS 1-5 EVERY 28 DAYS; PER
     Route: 041

REACTIONS (7)
  - Myelosuppression [Unknown]
  - Granulocytopenia [Unknown]
  - Febrile neutropenia [Unknown]
  - Pyrexia [Unknown]
  - Drug ineffective [Unknown]
  - Disease progression [Unknown]
  - Off label use [Unknown]
